FAERS Safety Report 4888428-7 (Version None)
Quarter: 2006Q1

REPORT INFORMATION
  Report Type: 
  Country: None (occurrence: None)
  Receive Date: 20060119
  Receipt Date: 20060119
  Transmission Date: 20060701
  Serious: Yes (Life-Threatening, Hospitalization, Other)
  Sender: FDA-Public Use
  Company Number: None

PATIENT
  Sex: Female
  Weight: 79.3795 kg

DRUGS (1)
  1. ORTHO EVRA [Suspect]
     Dosage: 1 PATCH/WK/CONTINUES WITHOUT A REST IN BETWEEN
     Dates: start: 20041114, end: 20050316

REACTIONS (1)
  - THROMBOSIS [None]
